FAERS Safety Report 7918584-5 (Version None)
Quarter: 2011Q4

REPORT INFORMATION
  Report Type: 
  Country: None (occurrence: None)
  Receive Date: 20111116
  Receipt Date: 20111101
  Transmission Date: 20120403
  Serious: Yes (Other)
  Sender: FDA-Public Use
  Company Number: US-WATSON-2011-18389

PATIENT
  Sex: Male

DRUGS (4)
  1. DARVOCET [Suspect]
     Indication: PAIN MANAGEMENT
     Dosage: UNK
     Route: 048
  2. DARVOCET [Suspect]
     Indication: PAIN
  3. PROPOXYPHENE HCL AND ACETAMINOPHEN [Suspect]
     Indication: PAIN
  4. PROPOXYPHENE HCL AND ACETAMINOPHEN [Suspect]
     Indication: PAIN MANAGEMENT
     Dosage: UNK
     Route: 048

REACTIONS (12)
  - CHEST PAIN [None]
  - DECREASED APPETITE [None]
  - DIZZINESS [None]
  - HEADACHE [None]
  - DYSPNOEA [None]
  - ABDOMINAL PAIN UPPER [None]
  - HYPOPNOEA [None]
  - SOMNOLENCE [None]
  - HEART RATE DECREASED [None]
  - NAUSEA [None]
  - PRURITUS [None]
  - DRY MOUTH [None]
